FAERS Safety Report 6316577-5 (Version None)
Quarter: 2009Q3

REPORT INFORMATION
  Report Type: 
  Country: None (occurrence: None)
  Receive Date: 20090820
  Receipt Date: 20090812
  Transmission Date: 20100115
  Serious: Yes (Other)
  Sender: FDA-Public Use
  Company Number: PHHY2009BR34127

PATIENT
  Age: 70 Year
  Sex: Female

DRUGS (9)
  1. DIOVAN HCT [Suspect]
     Indication: HYPERTENSION
     Dosage: UNK
     Dates: start: 20080801, end: 20080801
  2. DIOVAN HCT [Suspect]
     Dosage: 320/25MG 1 TABLET DAILY
     Route: 048
     Dates: start: 20080801
  3. BALCOR [Concomitant]
  4. CARVEDILOL [Concomitant]
  5. LIPITOR [Concomitant]
     Dosage: 20 MG, UNK
  6. LIPITOR [Concomitant]
     Dosage: 40 MG, UNK
  7. MONOCORDIL [Concomitant]
  8. ASPIRIN [Concomitant]
  9. OMEPRAZOLE [Concomitant]

REACTIONS (12)
  - AGITATION [None]
  - ARTHROPATHY [None]
  - BLOOD PRESSURE INCREASED [None]
  - CHEST DISCOMFORT [None]
  - DIABETES MELLITUS [None]
  - INSOMNIA [None]
  - MEMORY IMPAIRMENT [None]
  - NERVOUSNESS [None]
  - OSTEOPENIA [None]
  - STRESS [None]
  - TACHYCARDIA [None]
  - VISUAL IMPAIRMENT [None]
